FAERS Safety Report 4988135-6 (Version None)
Quarter: 2006Q2

REPORT INFORMATION
  Report Type: 
  Country: None (occurrence: None)
  Receive Date: 20060501
  Receipt Date: 20051005
  Transmission Date: 20061013
  Serious: Yes (Hospitalization)
  Sender: FDA-Public Use
  Company Number: US-MERCK-0510USA04389

PATIENT
  Age: 70 Year
  Sex: Male
  Weight: 102 kg

DRUGS (3)
  1. VIOXX [Suspect]
     Indication: ARTHRALGIA
     Route: 048
     Dates: start: 20000401, end: 20010701
  2. TYLENOL (CAPLET) [Concomitant]
     Route: 065
  3. VASOTEC [Concomitant]
     Route: 065

REACTIONS (15)
  - BACK DISORDER [None]
  - CARDIAC FIBRILLATION [None]
  - CORONARY ARTERY DISEASE [None]
  - GASTRIC DISORDER [None]
  - HYPERCHOLESTEROLAEMIA [None]
  - HYPERPARATHYROIDISM [None]
  - HYPERTENSION [None]
  - INTERVERTEBRAL DISC DEGENERATION [None]
  - LUMBAR SPINAL STENOSIS [None]
  - MYOCARDIAL INFARCTION [None]
  - NON-CARDIAC CHEST PAIN [None]
  - OEDEMA PERIPHERAL [None]
  - OSTEOARTHRITIS [None]
  - OSTEOPOROSIS [None]
  - RADICULOPATHY [None]
